FAERS Safety Report 4705525-7 (Version None)
Quarter: 2005Q2

REPORT INFORMATION
  Report Type: 
  Country: None (occurrence: None)
  Receive Date: 20050629
  Receipt Date: 20041008
  Transmission Date: 20051028
  Serious: Yes (Death, Hospitalization, Other)
  Sender: FDA-Public Use
  Company Number: 200411853EU

PATIENT
  Age: 85 Year
  Sex: Male

DRUGS (4)
  1. CISPLATIN [Suspect]
     Indication: NEOPLASM MALIGNANT
     Dosage: 150 MG/DAY IV
     Route: 042
     Dates: start: 20040510
  2. FLUOROURACIL [Suspect]
     Indication: NEOPLASM MALIGNANT
     Dosage: 7500 MG/DAY IV
     Route: 042
     Dates: start: 20040510
  3. ENALAPRIL MALEATE [Concomitant]
  4. ACETAMINOPHEN [Concomitant]

REACTIONS (2)
  - FEBRILE NEUTROPENIA [None]
  - RENAL FAILURE [None]
